FAERS Safety Report 24692755 (Version 1)
Quarter: 2024Q4

REPORT INFORMATION
  Report Type: Spontaneous
  Country: US (occurrence: None)
  Receive Date: 20241203
  Receipt Date: 20241203
  Transmission Date: 20250115
  Serious: Yes (Hospitalization)
  Sender: Public
  Company Number: None

PATIENT
  Age: 69 Year
  Sex: Male

DRUGS (2)
  1. IODIXANOL [Suspect]
     Active Substance: IODIXANOL
     Indication: Cardiovascular disorder
     Dates: start: 20241028, end: 20241028
  2. IODIXANOL [Suspect]
     Active Substance: IODIXANOL
     Indication: Surgery

REACTIONS (1)
  - Procedural hypotension [None]

NARRATIVE: CASE EVENT DATE: 20241028
